FAERS Safety Report 20222917 (Version 1)
Quarter: 2021Q4

REPORT INFORMATION
  Report Type: Spontaneous
  Country: SE (occurrence: SE)
  Receive Date: 20211223
  Receipt Date: 20211223
  Transmission Date: 20220303
  Serious: Yes (Hospitalization)
  Sender: FDA-Public Use
  Company Number: None

PATIENT
  Age: 79 Year
  Sex: Female

DRUGS (25)
  1. LYRICA [Suspect]
     Active Substance: PREGABALIN
     Dosage: 75 MG, ONCE A DAY
     Route: 048
  2. PAROXETINE [Suspect]
     Active Substance: PAROXETINE
     Dosage: 2 DF (2 TABLETS)
  3. DEXTROSE\SODIUM CHLORIDE [Concomitant]
     Active Substance: DEXTROSE\SODIUM CHLORIDE
     Dosage: BALANCE 4.25 % GLUCOSE 1.25 MMOL/L CALCIUM PERITONEAL DIALYSIS LIQUID
     Dates: start: 20210909
  4. POTASSIUM CHLORIDE [Concomitant]
     Active Substance: POTASSIUM CHLORIDE
     Dosage: 750 MG, 2X/DAY
     Route: 048
     Dates: start: 20210812
  5. LORATADINE [Concomitant]
     Active Substance: LORATADINE
     Dosage: 10 MG, AS NEEDED
     Route: 048
     Dates: start: 20210902
  6. BRICANYL [Concomitant]
     Active Substance: TERBUTALINE SULFATE
     Dosage: 0.25 MG, AS NEEDED (1-2 VB, 1-4 TIMES/DAY)
     Route: 055
     Dates: start: 20210902
  7. FOLVIDON [Concomitant]
     Dosage: 1 MG, 1X/DAY
     Route: 048
     Dates: start: 20210909
  8. ZOPICLONE [Concomitant]
     Active Substance: ZOPICLONE
     Dosage: 0.5 DF, 1X/DAY
     Dates: start: 20211012
  9. WARFARIN SODIUM [Concomitant]
     Active Substance: WARFARIN SODIUM
     Dosage: UNK MG
     Route: 048
     Dates: start: 2021
  10. ORUDIS [Concomitant]
     Active Substance: KETOPROFEN
     Dosage: AS NEEDED (DOSE WAS REPORTED AS 1)
     Dates: start: 20210805
  11. GLYCOSAMINOGLYCANS [Concomitant]
     Active Substance: GLYCOSAMINOGLYCANS
     Dosage: 3 DF, 1X/DAY
     Dates: start: 20210708
  12. RENVELA [Concomitant]
     Active Substance: SEVELAMER CARBONATE
     Dosage: 2 DF, 3X/DAY
     Route: 048
     Dates: start: 20210909
  13. UREA [Concomitant]
     Active Substance: UREA
     Dosage: 1 DF, AS NEEDED
     Dates: start: 20210902
  14. LERKANIDIPIN ACTAVIS [Concomitant]
     Dosage: 10 MG, 1X/DAY
     Route: 048
     Dates: start: 20211110
  15. FUROSEMIDE [Concomitant]
     Active Substance: FUROSEMIDE
     Dosage: 500 MG, 2X/DAY
     Route: 048
     Dates: start: 20210812
  16. ALVEDON COMP [Concomitant]
     Dosage: 1 DF, AS NEEDED
     Route: 048
     Dates: start: 20210805
  17. ERYTHROPOIETIN [Concomitant]
     Active Substance: ERYTHROPOIETIN
     Dosage: 2 DF, WEEKLY (4000 IU/0.5 ML )
     Route: 058
     Dates: start: 20210917
  18. CALCIUM CARBONATE [Concomitant]
     Active Substance: CALCIUM CARBONATE
     Dosage: 1 DF, 3X/DAY
     Route: 048
     Dates: start: 20210930
  19. MONOFERRIC [Concomitant]
     Active Substance: FERRIC DERISOMALTOSE
     Dosage: UNK
     Dates: start: 20211027
  20. ALFACALCIDOL ORIFARM [Concomitant]
     Dosage: 1 DF, 1X/DAY
     Route: 048
     Dates: start: 20210909
  21. CYANOCOBALAMIN [Concomitant]
     Active Substance: CYANOCOBALAMIN
     Dosage: 1 DF, 1X/DAY
     Route: 048
     Dates: start: 20210902
  22. DEXTROSE\SODIUM CHLORIDE [Concomitant]
     Active Substance: DEXTROSE\SODIUM CHLORIDE
     Dosage: UNK
     Dates: start: 20210909
  23. SODIUM PICOSULFATE [Concomitant]
     Active Substance: SODIUM PICOSULFATE
     Dosage: AS NEEDED (REPORTED DOSE: 1)
     Route: 048
     Dates: start: 20210902
  24. LAXIMYL [Concomitant]
     Dosage: 1 DF, 1X/DAY
     Route: 048
     Dates: start: 20210512
  25. SYMBICORT [Concomitant]
     Active Substance: BUDESONIDE\FORMOTEROL FUMARATE DIHYDRATE
     Dosage: UNK
     Route: 045

REACTIONS (2)
  - Confusional state [Recovering/Resolving]
  - Muscle twitching [Recovered/Resolved]

NARRATIVE: CASE EVENT DATE: 20211112
